FAERS Safety Report 7311956-1 (Version None)
Quarter: 2011Q1

REPORT INFORMATION
  Report Type: 
  Country: None (occurrence: None)
  Receive Date: 20110215
  Receipt Date: 20110215
  Transmission Date: 20110831
  Serious: Yes (Other)
  Sender: FDA-Public Use
  Company Number: None

PATIENT
  Sex: Female
  Weight: 59.1 kg

DRUGS (3)
  1. BUPROPION EXTENDED RELEASE 300MG WATSON [Suspect]
     Indication: MAJOR DEPRESSION
     Dosage: 300MG QD ORAL
     Route: 048
     Dates: start: 20100901, end: 20110101
  2. BUPROPION EXTENDED RELEASE 150 MG WATSON [Suspect]
     Indication: MAJOR DEPRESSION
     Dosage: 150 MG QD ORAL
     Route: 048
  3. CYMBALTA [Concomitant]

REACTIONS (7)
  - ASTHENIA [None]
  - SOMNOLENCE [None]
  - SUICIDAL IDEATION [None]
  - DEPRESSION [None]
  - IRRITABILITY [None]
  - DISTURBANCE IN ATTENTION [None]
  - ANHEDONIA [None]
